FAERS Safety Report 15805162 (Version 1)
Quarter: 2019Q1

REPORT INFORMATION
  Report Type: Spontaneous
  Country: US (occurrence: US)
  Receive Date: 20190110
  Receipt Date: 20190110
  Transmission Date: 20190417
  Serious: No
  Sender: FDA-Public Use
  Company Number: US-TEVA-2018-US-980577

PATIENT
  Age: 84 Year
  Sex: Male

DRUGS (4)
  1. FOSCARNET [Concomitant]
     Active Substance: FOSCARNET
     Indication: CYTOMEGALOVIRUS CHORIORETINITIS
     Route: 050
  2. PREDNISONE. [Concomitant]
     Active Substance: PREDNISONE
     Indication: RETINAL VASCULAR OCCLUSION
     Dosage: 40 MILLIGRAM DAILY;
     Route: 048
  3. VALGANCICLOVIR. [Suspect]
     Active Substance: VALGANCICLOVIR
     Indication: CYTOMEGALOVIRUS CHORIORETINITIS
     Dosage: DOSE ADJUSTED RENALLY FOR CHRONIC KIDNEY DISEASE
     Route: 065
  4. DORZOLAMIDE-TIMOLOL [Concomitant]
     Active Substance: DORZOLAMIDE\TIMOLOL
     Indication: CYTOMEGALOVIRUS CHORIORETINITIS
     Route: 061

REACTIONS (1)
  - Blood creatinine increased [Unknown]
